FAERS Safety Report 6245338-0 (Version None)
Quarter: 2009Q2

REPORT INFORMATION
  Report Type: 
  Country: None (occurrence: None)
  Receive Date: 20090622
  Receipt Date: 20081201
  Transmission Date: 20091009
  Serious: Yes (Other)
  Sender: FDA-Public Use
  Company Number: WWISSUE-240

PATIENT
  Sex: Male

DRUGS (3)
  1. LITHIUM CARBONATE [Suspect]
  2. MULTI-VITAMIN [Concomitant]
  3. FISH OIL [Concomitant]

REACTIONS (1)
  - MUSCLE SPASMS [None]
